FAERS Safety Report 4864162-4 (Version None)
Quarter: 2005Q4

REPORT INFORMATION
  Report Type: 
  Country: None (occurrence: None)
  Receive Date: 20051222
  Receipt Date: 20051220
  Transmission Date: 20060501
  Serious: Yes (Hospitalization)
  Sender: FDA-Public Use
  Company Number: FRPFM-E-20050124V001

PATIENT
  Age: 75 Year
  Sex: Male

DRUGS (5)
  1. CIBLOR [Suspect]
     Indication: LUNG DISORDER
     Dosage: 1G TWICE PER DAY
     Route: 048
     Dates: start: 20051111, end: 20051116
  2. COUMADIN [Suspect]
     Dosage: 2MG PER DAY
     Route: 048
     Dates: start: 20030215, end: 20051117
  3. KETEK [Concomitant]
     Indication: DRUG RESISTANCE
     Dosage: 400MG TWICE PER DAY
     Dates: start: 20051117, end: 20051121
  4. CALCIPARINE [Concomitant]
     Dosage: .2ML TWICE PER DAY
  5. TAVANIC [Concomitant]

REACTIONS (1)
  - INTERNATIONAL NORMALISED RATIO INCREASED [None]
